FAERS Safety Report 14744393 (Version 2)
Quarter: 2018Q2

REPORT INFORMATION
  Report Type: Spontaneous
  Country: CN (occurrence: CN)
  Receive Date: 20180411
  Receipt Date: 20180420
  Transmission Date: 20180711
  Serious: Yes (Other)
  Sender: FDA-Public Use
  Company Number: CN-ROCHE-2099165

PATIENT
  Age: 3 Year
  Sex: Female
  Weight: 23 kg

DRUGS (6)
  1. ACETAMINOPHEN. [Suspect]
     Active Substance: ACETAMINOPHEN
     Indication: PYREXIA
     Route: 048
     Dates: start: 20180114, end: 20180116
  2. DIAZEPAM. [Suspect]
     Active Substance: DIAZEPAM
     Indication: CONVULSION PROPHYLAXIS
     Route: 048
     Dates: start: 20180114, end: 20180117
  3. CREATINE PHOSPHATE SODIUM [Concomitant]
     Active Substance: CREATINE
     Indication: MYOCARDITIS
     Route: 041
     Dates: start: 20180114, end: 20180123
  4. BUDESONIDE. [Concomitant]
     Active Substance: BUDESONIDE
     Dosage: REDUCING AIRWAY HYPERRESPONSIVENESS
     Route: 055
     Dates: start: 20180114
  5. TAMIFLU [Suspect]
     Active Substance: OSELTAMIVIR PHOSPHATE
     Indication: MYOCARDITIS
     Route: 048
     Dates: start: 20180114, end: 20180119
  6. ROCEPHIN [Suspect]
     Active Substance: CEFTRIAXONE SODIUM
     Indication: UPPER RESPIRATORY TRACT INFECTION
     Route: 041
     Dates: start: 20180114, end: 20180123

REACTIONS (2)
  - Agranulocytosis [Unknown]
  - Leukopenia [Unknown]

NARRATIVE: CASE EVENT DATE: 20180122
